FAERS Safety Report 8002056-6 (Version None)
Quarter: 2011Q4

REPORT INFORMATION
  Report Type: 
  Country: None (occurrence: None)
  Receive Date: 20111222
  Receipt Date: 20111216
  Transmission Date: 20120403
  Serious: Yes (Other)
  Sender: FDA-Public Use
  Company Number: US-BAYER-2011-121762

PATIENT
  Sex: Male

DRUGS (2)
  1. AVELOX [Suspect]
     Indication: PNEUMONIA
     Dosage: UNK
     Dates: start: 20091201, end: 20100201
  2. PREDNISONE TAB [Suspect]
     Indication: PNEUMONIA
     Dosage: UNK
     Dates: start: 20091201, end: 20100201

REACTIONS (7)
  - ARTHRALGIA [None]
  - NERVE INJURY [None]
  - PERIPHERAL NERVE INJURY [None]
  - ARTHRITIS [None]
  - MUSCULOSKELETAL PAIN [None]
  - PAIN IN EXTREMITY [None]
  - BACK PAIN [None]
